FAERS Safety Report 22990643 (Version 3)
Quarter: 2023Q4

REPORT INFORMATION
  Report Type: Report from Study
  Country: US (occurrence: US)
  Receive Date: 20230927
  Receipt Date: 20231117
  Transmission Date: 20240110
  Serious: No
  Sender: FDA-Public Use
  Company Number: US-002147023-NVSC2023US203044

PATIENT
  Sex: Male

DRUGS (1)
  1. KESIMPTA [Suspect]
     Active Substance: OFATUMUMAB
     Indication: Multiple sclerosis
     Dosage: UNK
     Route: 065
     Dates: start: 20230907

REACTIONS (7)
  - Speech disorder [Unknown]
  - Pain [Unknown]
  - Cold sweat [Unknown]
  - Disorientation [Unknown]
  - Feeling abnormal [Unknown]
  - Pyrexia [Unknown]
  - Fatigue [Unknown]
